FAERS Safety Report 6152808-2 (Version None)
Quarter: 2009Q2

REPORT INFORMATION
  Report Type: 
  Country: None (occurrence: None)
  Receive Date: 20090413
  Receipt Date: 20090403
  Transmission Date: 20091009
  Serious: Yes (Other)
  Sender: FDA-Public Use
  Company Number: US-PFIZER INC-2009193432

PATIENT
  Sex: Female
  Weight: 74.83 kg

DRUGS (1)
  1. LIPITOR [Suspect]
     Indication: BLOOD CHOLESTEROL INCREASED
     Route: 048

REACTIONS (4)
  - DYSSTASIA [None]
  - MYALGIA [None]
  - MYOPATHY [None]
  - WALKING DISABILITY [None]
